FAERS Safety Report 11701377 (Version 1)
Quarter: 2015Q4

REPORT INFORMATION
  Report Type: Spontaneous
  Country: AU (occurrence: AU)
  Receive Date: 20151105
  Receipt Date: 20151105
  Transmission Date: 20160304
  Serious: Yes (Hospitalization)
  Sender: FDA-Public Use
  Company Number: AU-BAYER-2015-454240

PATIENT
  Sex: Female

DRUGS (1)
  1. YAZ [Suspect]
     Active Substance: DROSPIRENONE\ETHINYL ESTRADIOL
     Indication: ACNE
     Route: 048

REACTIONS (8)
  - Paraesthesia [None]
  - Stress [None]
  - Chest pain [None]
  - Nausea [None]
  - Vision blurred [None]
  - Panic attack [None]
  - Pain in extremity [None]
  - Dizziness [None]

NARRATIVE: CASE EVENT DATE: 2015
